FAERS Safety Report 5630038-8 (Version None)
Quarter: 2008Q1

REPORT INFORMATION
  Report Type: 
  Country: None (occurrence: None)
  Receive Date: 20080218
  Receipt Date: 20080206
  Transmission Date: 20080703
  Serious: Yes (Disabling, Other)
  Sender: FDA-Public Use
  Company Number: DE-GILEAD-2008-0015313

PATIENT
  Sex: Male
  Weight: 65 kg

DRUGS (3)
  1. VIREAD [Suspect]
     Indication: HIV INFECTION
     Route: 048
     Dates: start: 20060608, end: 20070104
  2. EMTRIVA [Suspect]
     Indication: HIV INFECTION
     Route: 048
     Dates: start: 20060608, end: 20070104
  3. VIRACEPT [Suspect]
     Indication: HIV INFECTION
     Route: 048
     Dates: start: 20060608, end: 20070104

REACTIONS (4)
  - ASTHENIA [None]
  - FANCONI SYNDROME ACQUIRED [None]
  - FATIGUE [None]
  - WALKING DISABILITY [None]
